FAERS Safety Report 4337230-3 (Version None)
Quarter: 2004Q2

REPORT INFORMATION
  Report Type: 
  Country: None (occurrence: None)
  Receive Date: 20040406
  Receipt Date: 20030313
  Transmission Date: 20050107
  Serious: Yes (Other)
  Sender: FDA-Public Use
  Company Number: 200311496GDS

PATIENT
  Age: 68 Year
  Sex: Male

DRUGS (6)
  1. ADALAT [Suspect]
     Indication: ILL-DEFINED DISORDER
     Dosage: ORLA
     Route: 048
     Dates: start: 20030101
  2. NORVASC [Suspect]
     Indication: HYPERTENSION
     Dosage: 5 MG, TOTAL DAILY, ORAL
     Route: 048
     Dates: start: 20020419, end: 20030122
  3. COROLIN [Concomitant]
  4. CORTISONE [Concomitant]
  5. FLUTICASONE PROPIONATE [Concomitant]
  6. ASPIRIN [Concomitant]

REACTIONS (1)
  - ERYTHEMA MULTIFORME [None]
